FAERS Safety Report 4537525-4 (Version None)
Quarter: 2005Q1

REPORT INFORMATION
  Report Type: 
  Country: None (occurrence: None)
  Receive Date: 20041216
  Receipt Date: 20040608
  Transmission Date: 20050727
  Serious: Yes (Hospitalization, Other)
  Sender: FDA-Public Use
  Company Number: HQWYE400809JUN04

PATIENT
  Age: 47 Year
  Sex: Female
  Weight: 54.48 kg

DRUGS (2)
  1. EFFEXOR XR [Suspect]
     Indication: DEPRESSION
     Dosage: TITRATED UP TO 337.5 MG DAILY, ORAL
     Route: 048
     Dates: start: 20040529, end: 20040601
  2. OLANZAPINE [Concomitant]

REACTIONS (1)
  - BLOOD PRESSURE INCREASED [None]
